FAERS Safety Report 9163431 (Version 2)
Quarter: 2013Q2

REPORT INFORMATION
  Report Type: Report from Study
  Country: US (occurrence: US)
  Receive Date: 20130314
  Receipt Date: 20130524
  Transmission Date: 20140414
  Serious: Yes (Other)
  Sender: FDA-Public Use
  Company Number: US-ROCHE-1201487

PATIENT
  Sex: 0

DRUGS (9)
  1. BEVACIZUMAB [Suspect]
     Indication: MEDULLOBLASTOMA RECURRENT
     Dosage: DOSE: 10-15MG/KG
     Route: 042
  2. BEVACIZUMAB [Suspect]
     Indication: PRIMITIVE NEUROECTODERMAL TUMOUR
  3. BEVACIZUMAB [Suspect]
     Indication: PINEALOBLASTOMA
  4. IRINOTECAN HYDROCHLORIDE [Suspect]
     Indication: MEDULLOBLASTOMA RECURRENT
     Route: 065
  5. IRINOTECAN HYDROCHLORIDE [Suspect]
     Indication: PRIMITIVE NEUROECTODERMAL TUMOUR
  6. IRINOTECAN HYDROCHLORIDE [Suspect]
     Indication: PINEALOBLASTOMA
  7. TEMOZOLOMIDE [Suspect]
     Indication: MEDULLOBLASTOMA RECURRENT
     Route: 065
  8. TEMOZOLOMIDE [Suspect]
     Indication: PRIMITIVE NEUROECTODERMAL TUMOUR
  9. TEMOZOLOMIDE [Suspect]
     Indication: PINEALOBLASTOMA

REACTIONS (16)
  - Liver function test abnormal [Unknown]
  - Neutropenia [Unknown]
  - Colitis [Unknown]
  - Diarrhoea [Unknown]
  - Thrombocytopenia [Unknown]
  - Mucosal inflammation [Unknown]
  - Cellulitis [Unknown]
  - Febrile neutropenia [Unknown]
  - Pancreatitis [Unknown]
  - Fatigue [Unknown]
  - Alopecia [Unknown]
  - Epistaxis [Unknown]
  - Convulsion [Unknown]
  - Proteinuria [Unknown]
  - Cerebral haemangioma [Unknown]
  - Haemangioma [Unknown]
